FAERS Safety Report 18569683 (Version 1)
Quarter: 2020Q4

REPORT INFORMATION
  Report Type: Spontaneous
  Country: US (occurrence: US)
  Receive Date: 20201201
  Receipt Date: 20201201
  Transmission Date: 20210114
  Serious: No
  Sender: FDA-Public Use
  Company Number: None

PATIENT
  Sex: Female

DRUGS (6)
  1. ENDOMETRIN VAG TAB [Concomitant]
  2. ESTRADIOL. [Concomitant]
     Active Substance: ESTRADIOL
  3. HCG 100000 [Concomitant]
  4. MENOPUR [Concomitant]
     Active Substance: FOLLITROPIN\LUTEINIZING HORMONE
  5. LEUPROLIDE [Concomitant]
     Active Substance: LEUPROLIDE
  6. FOLLISTIM AQ [Suspect]
     Active Substance: FOLLITROPIN
     Indication: PRODUCT USED FOR UNKNOWN INDICATION
     Dosage: OTHER DOSE:50-450 UNITS; AS DIRECTED?
     Route: 058
     Dates: start: 20201003

REACTIONS (2)
  - Exposure during pregnancy [None]
  - Pregnancy [None]
